FAERS Safety Report 5373888-8 (Version None)
Quarter: 2007Q2

REPORT INFORMATION
  Report Type: 
  Country: None (occurrence: None)
  Receive Date: 20070615
  Receipt Date: 20060515
  Transmission Date: 20071010
  Serious: Yes (Other)
  Sender: FDA-Public Use
  Company Number: 200611863US

PATIENT
  Age: 67 Year
  Sex: Male
  Weight: 53 kg

DRUGS (13)
  1. LANTUS [Suspect]
     Indication: INSULIN-REQUIRING TYPE II DIABETES MELLITUS
     Dosage: CYC
     Dates: start: 20051127
  2. OPTICLIK [Suspect]
     Dosage: HS
     Dates: start: 20051127
  3. PREDNISONE [Suspect]
     Indication: LYMPHOMA
     Dosage: 50 MG CYC
     Dates: start: 20051126
  4. RITUXAN [Concomitant]
  5. CYCLOPHOSPHAMIDE [Concomitant]
  6. DOXORUBICIN HCL [Concomitant]
  7. VINCRISTINE [Concomitant]
  8. AVANDIA [Concomitant]
  9. GLIPIZIDE [Concomitant]
  10. LOVASTATIN [Concomitant]
  11. PARACETAMOL, HYDROCODONE BITARTRATE (VICODIN) [Concomitant]
  12. AMBIEN [Concomitant]
  13. VIAGRA [Concomitant]

REACTIONS (1)
  - BLOOD GLUCOSE INCREASED [None]
